FAERS Safety Report 25988756 (Version 2)
Quarter: 2025Q4

REPORT INFORMATION
  Report Type: Spontaneous
  Country: JP (occurrence: JP)
  Receive Date: 20251103
  Receipt Date: 20251126
  Transmission Date: 20260118
  Serious: Yes (Other)
  Sender: CHEPLAPHARM
  Company Number: JP-CHEPLA-2025012408

PATIENT
  Age: 32 Week
  Sex: Male
  Weight: 1.1679 kg

DRUGS (8)
  1. GANCICLOVIR [Suspect]
     Active Substance: GANCICLOVIR
     Indication: Cytomegalovirus chorioretinitis
     Dosage: DOL 14; TWICE A DAY?DAILY DOSE: 12 MILLIGRAM/KG
     Route: 042
  2. GANCICLOVIR [Suspect]
     Active Substance: GANCICLOVIR
     Indication: Congenital cytomegalovirus infection
     Dosage: DOL 14; TWICE A DAY?DAILY DOSE: 12 MILLIGRAM/KG
     Route: 042
  3. GANCICLOVIR [Suspect]
     Active Substance: GANCICLOVIR
     Indication: Cytomegalovirus chorioretinitis
     Dosage: TWICE A DAY?DAILY DOSE: 12 MILLIGRAM/KG
     Route: 042
  4. GANCICLOVIR [Suspect]
     Active Substance: GANCICLOVIR
     Indication: Congenital cytomegalovirus infection
     Dosage: TWICE A DAY?DAILY DOSE: 12 MILLIGRAM/KG
     Route: 042
  5. VALGANCICLOVIR [Suspect]
     Active Substance: VALGANCICLOVIR
     Indication: Cytomegalovirus chorioretinitis
     Dosage: ON DOL 34; TWICE A DAY; DRY SYRUP?DAILY DOSE: 32 MILLIGRAM/KG
     Route: 048
  6. VALGANCICLOVIR [Suspect]
     Active Substance: VALGANCICLOVIR
     Indication: Congenital cytomegalovirus infection
     Dosage: ON DOL 34; TWICE A DAY; DRY SYRUP?DAILY DOSE: 32 MILLIGRAM/KG
     Route: 048
  7. VALGANCICLOVIR [Suspect]
     Active Substance: VALGANCICLOVIR
     Indication: Cytomegalovirus chorioretinitis
     Dosage: TWICE A DAY; DRY SYRUP?DAILY DOSE: 32 MILLIGRAM/KG
     Route: 048
  8. VALGANCICLOVIR [Suspect]
     Active Substance: VALGANCICLOVIR
     Indication: Congenital cytomegalovirus infection
     Dosage: TWICE A DAY; DRY SYRUP?DAILY DOSE: 32 MILLIGRAM/KG
     Route: 048

REACTIONS (5)
  - Delayed myelination [Unknown]
  - Polymicrogyria [Unknown]
  - Neutrophil count decreased [Recovered/Resolved]
  - Developmental delay [Unknown]
  - Off label use [Recovered/Resolved]
